FAERS Safety Report 4408284-0 (Version None)
Quarter: 2004Q3

REPORT INFORMATION
  Report Type: 
  Country: None (occurrence: None)
  Receive Date: 20040722
  Receipt Date: 20030812
  Transmission Date: 20050211
  Serious: Yes (Death, Hospitalization)
  Sender: FDA-Public Use
  Company Number: 201825

PATIENT
  Age: 48 Year
  Sex: Female
  Weight: 70 kg

DRUGS (2)
  1. HERCEPTIN [Suspect]
     Indication: BREAST CANCER
     Dosage: 4 MG/KG, SINGLE , INTRAVENOUS
     Route: 042
     Dates: start: 20030701, end: 20030701
  2. PACLITAXEL [Concomitant]
     Indication: BREAST CANCER
     Dosage: 175 MG /M2,
     Dates: end: 20030701

REACTIONS (1)
  - HEPATOTOXICITY [None]
